FAERS Safety Report 20074099 (Version 2)
Quarter: 2021Q4

REPORT INFORMATION
  Report Type: Spontaneous
  Country: ES (occurrence: ES)
  Receive Date: 20211116
  Receipt Date: 20211118
  Transmission Date: 20220303
  Serious: Yes (Life-Threatening, Hospitalization, Other)
  Sender: FDA-Public Use
  Company Number: ES-009507513-2107ESP000583

PATIENT
  Age: 62 Year
  Sex: Male

DRUGS (3)
  1. SUGAMMADEX SODIUM [Suspect]
     Active Substance: SUGAMMADEX SODIUM
     Indication: Neuromuscular blockade reversal
     Dosage: 200 MILLIGRAM, 2 MINUTES BEFORE EVENT
     Route: 042
     Dates: start: 201906
  2. METAMIZOLE [Concomitant]
     Active Substance: METAMIZOLE
     Dosage: 2 GRAM, 30 MIN BEFORE EVENT
     Route: 042
     Dates: start: 201906
  3. ONDANSETRON [Concomitant]
     Active Substance: ONDANSETRON
     Dosage: 4 MILLIGRAM, 5 MINUTES BEFORE EVENT
     Route: 042
     Dates: start: 201906

REACTIONS (1)
  - Anaphylactic shock [Recovered/Resolved]

NARRATIVE: CASE EVENT DATE: 20190601
